FAERS Safety Report 8558152-8 (Version None)
Quarter: 2012Q3

REPORT INFORMATION
  Report Type: 
  Country: None (occurrence: None)
  Receive Date: 20120801
  Receipt Date: 20120725
  Transmission Date: 20120928
  Serious: No
  Sender: FDA-Public Use
  Company Number: US-BAYER-2012-075626

PATIENT
  Age: 44 Year
  Sex: Female

DRUGS (1)
  1. MIRENA [Suspect]
     Indication: CONTRACEPTION
     Dosage: 20 MCG/24HR, CONT
     Route: 015
     Dates: start: 20120501

REACTIONS (7)
  - BREAST TENDERNESS [None]
  - WEIGHT INCREASED [None]
  - LIBIDO DECREASED [None]
  - NERVOUSNESS [None]
  - OEDEMA PERIPHERAL [None]
  - HYPERTENSION [None]
  - ARTHRALGIA [None]
